FAERS Safety Report 25839881 (Version 1)
Quarter: 2025Q3

REPORT INFORMATION
  Report Type: Report from Study
  Country: US (occurrence: US)
  Receive Date: 20250924
  Receipt Date: 20250924
  Transmission Date: 20251021
  Serious: Yes (Other)
  Sender: ABBVIE
  Company Number: US-ABBVIE-6468389

PATIENT
  Age: 71 Year
  Sex: Male

DRUGS (2)
  1. SKYRIZI [Suspect]
     Active Substance: RISANKIZUMAB-RZAA
     Indication: Product used for unknown indication
     Route: 042
     Dates: start: 20250915
  2. SKYRIZI [Suspect]
     Active Substance: RISANKIZUMAB-RZAA
     Indication: Product used for unknown indication
     Route: 042
     Dates: start: 202509

REACTIONS (8)
  - Colon cancer [Unknown]
  - Infusion related reaction [Recovering/Resolving]
  - Fatigue [Recovering/Resolving]
  - Food refusal [Recovering/Resolving]
  - Pyrexia [Recovering/Resolving]
  - Weight abnormal [Unknown]
  - Malnutrition [Unknown]
  - Crohn^s disease [Unknown]

NARRATIVE: CASE EVENT DATE: 20250901
